FAERS Safety Report 25906220 (Version 1)
Quarter: 2025Q4

REPORT INFORMATION
  Report Type: Spontaneous
  Country: US (occurrence: US)
  Receive Date: 20251010
  Receipt Date: 20251010
  Transmission Date: 20260117
  Serious: Yes (Hospitalization, Other)
  Sender: AUROBINDO
  Company Number: US-MLMSERVICE-20250925-PI658393-00095-2

PATIENT
  Age: 5 Decade
  Sex: Female

DRUGS (1)
  1. HYDROXYCHLOROQUINE [Suspect]
     Active Substance: HYDROXYCHLOROQUINE
     Indication: Rheumatoid arthritis
     Dosage: 3.6 MILLIGRAM/KILOGRAM
     Route: 065

REACTIONS (5)
  - Electrocardiogram QT prolonged [Recovered/Resolved]
  - Atrioventricular block second degree [Recovered/Resolved]
  - Ventricular tachycardia [Recovered/Resolved]
  - Blood magnesium decreased [Unknown]
  - Aspartate aminotransferase increased [Unknown]
